FAERS Safety Report 12640489 (Version 1)
Quarter: 2016Q3

REPORT INFORMATION
  Report Type: Spontaneous
  Country: BR (occurrence: BR)
  Receive Date: 20160810
  Receipt Date: 20160810
  Transmission Date: 20161109
  Serious: Yes (Other)
  Sender: FDA-Public Use
  Company Number: BR-PFIZER INC-2016375813

PATIENT
  Age: 89 Year
  Sex: Female

DRUGS (1)
  1. DETRUSITOL [Suspect]
     Active Substance: TOLTERODINE TARTRATE
     Indication: URINARY INCONTINENCE
     Dosage: 4 MG, UNK

REACTIONS (5)
  - Dizziness [Unknown]
  - Tremor [Unknown]
  - Poisoning [Unknown]
  - Flatulence [Unknown]
  - Intentional product use issue [Unknown]
